FAERS Safety Report 8295371-2 (Version None)
Quarter: 2012Q2

REPORT INFORMATION
  Report Type: 
  Country: None (occurrence: None)
  Receive Date: 20120418
  Receipt Date: 20120322
  Transmission Date: 20120825
  Serious: No
  Sender: FDA-Public Use
  Company Number: US-BAXTER-2012BAX000715

PATIENT

DRUGS (2)
  1. TAXOTERE [Suspect]
     Route: 041
  2. CYTOXAN [Suspect]
     Route: 065

REACTIONS (1)
  - HYPERSENSITIVITY [None]
